FAERS Safety Report 16722982 (Version 9)
Quarter: 2022Q2

REPORT INFORMATION
  Report Type: Spontaneous
  Country: US (occurrence: US)
  Receive Date: 20190821
  Receipt Date: 20220502
  Transmission Date: 20220721
  Serious: Yes (Hospitalization, Other)
  Sender: FDA-Public Use
  Company Number: None

PATIENT
  Sex: Male
  Weight: 43 kg

DRUGS (1)
  1. KYMRIAH [Suspect]
     Active Substance: TISAGENLECLEUCEL
     Indication: Acute lymphocytic leukaemia
     Dosage: 43 ML (2.2X10E6 CAR POSITIVE VIABLE T CELLS), ONCE/SINGLE
     Route: 042
     Dates: start: 20190521, end: 20190521

REACTIONS (3)
  - Cytokine release syndrome [Unknown]
  - Pyrexia [Unknown]
  - Drug ineffective [Unknown]
